FAERS Safety Report 5637166-1 (Version None)
Quarter: 2008Q1

REPORT INFORMATION
  Report Type: 
  Country: None (occurrence: None)
  Receive Date: 20080225
  Receipt Date: 20071219
  Transmission Date: 20080703
  Serious: No
  Sender: FDA-Public Use
  Company Number: US-BRISTOL-MYERS SQUIBB COMPANY-14020333

PATIENT
  Sex: Female

DRUGS (3)
  1. METFORMIN HCL [Suspect]
  2. GLUCOTROL XL [Suspect]
  3. BYETTA [Suspect]

REACTIONS (2)
  - RENAL DISORDER [None]
  - VOMITING [None]
